FAERS Safety Report 6704146-4 (Version None)
Quarter: 2010Q2

REPORT INFORMATION
  Report Type: 
  Country: None (occurrence: None)
  Receive Date: 20100430
  Receipt Date: 20100426
  Transmission Date: 20101027
  Serious: Yes (Death, Other)
  Sender: FDA-Public Use
  Company Number: JP-JNJFOC-20100406045

PATIENT
  Age: 70 Year
  Sex: Male

DRUGS (4)
  1. DUROTEP MT [Suspect]
     Indication: CANCER PAIN
     Route: 062
  2. SANDOSTATIN [Concomitant]
     Route: 065
  3. RINDERON [Concomitant]
     Route: 065
  4. SOLDEM 3A [Concomitant]
     Route: 065

REACTIONS (4)
  - DELIRIUM [None]
  - HALLUCINATION [None]
  - RECTAL CANCER [None]
  - WRONG TECHNIQUE IN DRUG USAGE PROCESS [None]
